FAERS Safety Report 8954098 (Version 1)
Quarter: 2012Q4

REPORT INFORMATION
  Report Type: 
  Country: US (occurrence: US)
  Receive Date: 20121207
  Receipt Date: 20121207
  Transmission Date: 20130627
  Serious: Yes (Hospitalization, Other)
  Sender: FDA-Public Use
  Company Number: US-BAYER-2012-127975

PATIENT
  Age: 19 Year
  Sex: Female
  Weight: 49.89 kg

DRUGS (3)
  1. ALEVE CAPLET/TABLET,MIDOL EXTENDED RELIEF CAPLET [Suspect]
     Dosage: 5 DF, UNK
     Route: 048
  2. BAYER ASPIRIN REGIMEN ADULT LOW STRENGTH [Suspect]
     Indication: SUICIDE ATTEMPT
     Dosage: 20 DF, ONCE
     Route: 048
     Dates: start: 20121203, end: 20121203
  3. TYLENOL PM [Suspect]
     Indication: SUICIDE ATTEMPT
     Dosage: 10 DF, UNK

REACTIONS (3)
  - Intentional overdose [None]
  - Pallor [None]
  - Overdose [None]
